FAERS Safety Report 20045459 (Version 2)
Quarter: 2022Q2

REPORT INFORMATION
  Report Type: Spontaneous
  Country: CA (occurrence: CA)
  Receive Date: 20211108
  Receipt Date: 20220408
  Transmission Date: 20220721
  Serious: Yes (Other)
  Sender: FDA-Public Use
  Company Number: CA-TEVA-2021-CA-1973698

PATIENT
  Age: 59 Year
  Sex: Female

DRUGS (15)
  1. CIPROFLOXACIN [Interacting]
     Active Substance: CIPROFLOXACIN
     Indication: Product used for unknown indication
     Dosage: 1000 MILLIGRAM DAILY;
     Route: 065
  2. LEVOFLOXACIN [Interacting]
     Active Substance: LEVOFLOXACIN
     Indication: Product used for unknown indication
     Dosage: 750 MILLIGRAM DAILY;
     Route: 065
  3. LEVOFLOXACIN [Interacting]
     Active Substance: LEVOFLOXACIN
     Route: 065
  4. RIFAMPIN [Interacting]
     Active Substance: RIFAMPIN
     Indication: Infection
     Dosage: 600 MILLIGRAM DAILY;
     Route: 065
  5. RIFAMPIN [Interacting]
     Active Substance: RIFAMPIN
     Indication: Device related infection
     Route: 048
  6. RIFAMPIN [Interacting]
     Active Substance: RIFAMPIN
     Indication: Arthritis infective
  7. WARFARIN [Interacting]
     Active Substance: WARFARIN
     Indication: Atrial fibrillation
     Route: 065
  8. WARFARIN [Interacting]
     Active Substance: WARFARIN
     Indication: Pulmonary embolism
     Route: 048
  9. WARFARIN [Interacting]
     Active Substance: WARFARIN
     Indication: Deep vein thrombosis
     Route: 048
  10. WARFARIN [Interacting]
     Active Substance: WARFARIN
     Route: 048
  11. WARFARIN [Interacting]
     Active Substance: WARFARIN
     Route: 048
  12. WARFARIN [Interacting]
     Active Substance: WARFARIN
     Route: 048
  13. WARFARIN [Interacting]
     Active Substance: WARFARIN
     Route: 048
  14. WARFARIN [Interacting]
     Active Substance: WARFARIN
     Route: 048
  15. WARFARIN [Interacting]
     Active Substance: WARFARIN
     Route: 048

REACTIONS (2)
  - Drug interaction [Unknown]
  - International normalised ratio abnormal [Unknown]
